FAERS Safety Report 7849599-3 (Version None)
Quarter: 2011Q4

REPORT INFORMATION
  Report Type: 
  Country: None (occurrence: None)
  Receive Date: 20111026
  Receipt Date: 20110126
  Transmission Date: 20120403
  Serious: Yes (Hospitalization)
  Sender: FDA-Public Use
  Company Number: US-BAYER-2011-011025

PATIENT
  Age: 45 Year
  Sex: Male

DRUGS (8)
  1. MIRTAZAPINE [Concomitant]
     Dosage: 45 MG, UNK
  2. SYNTHROID [Concomitant]
     Dosage: UNK
  3. ALPRAZOLAM [Concomitant]
     Dosage: 2 MG, UNK
  4. TRAZODONE HYDROCHLORIDE [Concomitant]
     Dosage: 50 MG, UNK
  5. AMOXICILINA CLAV [Concomitant]
     Dosage: 875 MG, UNK
  6. NEXAVAR [Suspect]
     Indication: HEPATIC NEOPLASM MALIGNANT
     Dosage: 400 MG, BID
     Route: 048
  7. HYDROCODONE BITARTRATE AND ACETAMINOPHEN [Concomitant]
     Dosage: 7.5MG/500 MG,
  8. LEVAQUIN [Concomitant]
     Dosage: 500 MG, UNK

REACTIONS (3)
  - PALMAR-PLANTAR ERYTHRODYSAESTHESIA SYNDROME [None]
  - DIARRHOEA [None]
  - PNEUMONIA [None]
